FAERS Safety Report 4941256-6 (Version None)
Quarter: 2006Q1

REPORT INFORMATION
  Report Type: 
  Country: None (occurrence: None)
  Receive Date: 20060313
  Receipt Date: 20050414
  Transmission Date: 20060701
  Serious: Yes (Other)
  Sender: FDA-Public Use
  Company Number: US-MERCK-0504USA02941

PATIENT
  Age: 54 Year
  Sex: Male
  Weight: 91 kg

DRUGS (26)
  1. HUMIRA [Concomitant]
     Indication: RHEUMATOID ARTHRITIS
     Route: 065
     Dates: start: 20030101
  2. MONOPRIL [Concomitant]
     Indication: HYPERTENSION
     Route: 065
     Dates: start: 20030101
  3. MONOPRIL [Concomitant]
     Route: 065
     Dates: start: 20030101
  4. TOPROL-XL [Concomitant]
     Indication: HYPERTENSION
     Route: 065
     Dates: start: 20030101
  5. CARDIZEM [Concomitant]
     Route: 065
     Dates: start: 20030101
  6. CARDIZEM [Concomitant]
     Route: 065
     Dates: start: 20030101
  7. NAPROXEN [Concomitant]
     Indication: PAIN
     Route: 065
     Dates: start: 19970101
  8. NAPROXEN [Concomitant]
     Route: 065
     Dates: start: 19970101
  9. ADVIL [Concomitant]
     Indication: PAIN
     Route: 065
     Dates: start: 19970101
  10. METHOTREXATE [Concomitant]
     Route: 065
     Dates: start: 19970101, end: 20010101
  11. METHOTREXATE [Concomitant]
     Route: 065
     Dates: start: 19970101, end: 20010101
  12. VIOXX [Suspect]
     Indication: RHEUMATOID ARTHRITIS
     Route: 048
     Dates: start: 20000101, end: 20040901
  13. VIOXX [Suspect]
     Route: 048
     Dates: start: 20000101, end: 20040901
  14. ZOCOR [Concomitant]
     Indication: CARDIAC DISORDER
     Route: 065
     Dates: start: 19990101
  15. ASPIRIN [Concomitant]
     Indication: PROPHYLAXIS
     Route: 065
     Dates: start: 20030101
  16. PLAVIX [Concomitant]
     Indication: ANTIPLATELET THERAPY
     Route: 065
     Dates: start: 20030101
  17. IMDUR [Concomitant]
     Indication: CARDIAC DISORDER
     Route: 065
  18. ATENOLOL [Concomitant]
     Indication: CARDIAC DISORDER
     Route: 065
     Dates: start: 20031201, end: 20060101
  19. VASOTEC RPD [Concomitant]
     Indication: CARDIAC DISORDER
     Route: 065
     Dates: start: 20031201
  20. ARAVA [Concomitant]
     Indication: RHEUMATOID ARTHRITIS
     Route: 065
  21. MEDROL [Concomitant]
     Indication: RHEUMATOID ARTHRITIS
     Route: 065
  22. INJECTABLE GOLD (UNSPECIFIED) [Concomitant]
     Indication: RHEUMATOID ARTHRITIS
     Route: 051
  23. INJECTABLE GOLD (UNSPECIFIED) [Concomitant]
     Route: 051
  24. PLAQUENIL [Concomitant]
     Indication: RHEUMATOID ARTHRITIS
     Route: 065
  25. ZITHROMAX [Concomitant]
     Indication: NASOPHARYNGITIS
     Route: 065
  26. LORAZEPAM [Concomitant]
     Indication: SLEEP DISORDER
     Route: 065

REACTIONS (7)
  - ANGINA PECTORIS [None]
  - CORONARY ARTERY OCCLUSION [None]
  - HYPERTENSION [None]
  - MYOCARDIAL INFARCTION [None]
  - NASOPHARYNGITIS [None]
  - SINUS DISORDER [None]
  - SLEEP DISORDER [None]
